FAERS Safety Report 9649447 (Version 1)
Quarter: 2013Q4

REPORT INFORMATION
  Report Type: Spontaneous
  Country: US (occurrence: None)
  Receive Date: 20131018
  Receipt Date: 20131018
  Transmission Date: 20140711
  Serious: Yes (Other)
  Sender: FDA-Public Use
  Company Number: AEGR000094

PATIENT
  Age: 53 Year
  Sex: Female
  Weight: 61.2 kg

DRUGS (1)
  1. JUXTAPID (LOMITAPIDE) CAPSULE, 10MG [Suspect]
     Indication: TYPE IIA HYPERLIPIDAEMIA
     Route: 048
     Dates: start: 201305

REACTIONS (5)
  - Abdominal pain upper [None]
  - Gastrointestinal pain [None]
  - Abdominal distension [None]
  - Constipation [None]
  - Flatulence [None]
